FAERS Safety Report 23675492 (Version 1)
Quarter: 2024Q1

REPORT INFORMATION
  Report Type: Spontaneous
  Country: US (occurrence: US)
  Receive Date: 20240327
  Receipt Date: 20240327
  Transmission Date: 20240410
  Serious: Yes (Hospitalization)
  Sender: FDA-Public Use
  Company Number: US-AUROBINDO-AUR-APL-2024-009283

PATIENT
  Age: 7 Year
  Sex: Male
  Weight: 42 kg

DRUGS (1)
  1. CEFDINIR [Suspect]
     Active Substance: CEFDINIR
     Indication: Ear infection
     Dosage: 5.8 MILLILITER, TWO TIMES A DAY
     Route: 048
     Dates: start: 20240206, end: 20240215

REACTIONS (8)
  - Arthritis [Not Recovered/Not Resolved]
  - Serum sickness-like reaction [Unknown]
  - Rash [Unknown]
  - Arthralgia [Unknown]
  - Swelling [Unknown]
  - Urticaria [Recovering/Resolving]
  - Peripheral swelling [Not Recovered/Not Resolved]
  - Pain [Not Recovered/Not Resolved]

NARRATIVE: CASE EVENT DATE: 20240216
